FAERS Safety Report 15240210 (Version 2)
Quarter: 2018Q3

REPORT INFORMATION
  Report Type: Spontaneous
  Country: ES (occurrence: ES)
  Receive Date: 20180804
  Receipt Date: 20180817
  Transmission Date: 20181010
  Serious: Yes (Hospitalization, Congenital Anomaly, Other)
  Sender: FDA-Public Use
  Company Number: ES-AUROBINDO-AUR-APL-2018-039024

PATIENT
  Age: 32 Week
  Sex: Male

DRUGS (2)
  1. OLMESARTAN [Suspect]
     Active Substance: OLMESARTAN
     Indication: ESSENTIAL HYPERTENSION
     Dosage: LAST DOSE ADMINISTERED 24 HOURS PRIOR TO C?SECTION
     Route: 064
  2. AMLODIPINE [Suspect]
     Active Substance: AMLODIPINE BESYLATE
     Indication: ESSENTIAL HYPERTENSION
     Dosage: LAST DOSE ADMINISTERED 24 HOURS PRIOR TO C?SECTION ()
     Route: 064

REACTIONS (14)
  - Hypertension neonatal [Unknown]
  - Pneumothorax [Unknown]
  - Anuria [Recovering/Resolving]
  - Renal failure neonatal [Recovering/Resolving]
  - Potter^s syndrome [Unknown]
  - Anaemia [Unknown]
  - Premature baby [Unknown]
  - Proteinuria [Recovering/Resolving]
  - Foetal exposure during pregnancy [Recovering/Resolving]
  - Areflexia [Unknown]
  - Foetal growth restriction [Unknown]
  - Oliguria [Recovering/Resolving]
  - Hypotonia neonatal [Unknown]
  - Pulmonary hypoplasia [Unknown]
